FAERS Safety Report 7942070-X (Version None)
Quarter: 2011Q4

REPORT INFORMATION
  Report Type: 
  Country: None (occurrence: None)
  Receive Date: 20111128
  Receipt Date: 20111128
  Transmission Date: 20120403
  Serious: Yes (Other)
  Sender: FDA-Public Use
  Company Number: None

PATIENT
  Age: 63 Year
  Sex: Female
  Weight: 56.699 kg

DRUGS (1)
  1. MELOXICAM [Suspect]
     Indication: MUSCLE STRAIN
     Dosage: 1
     Route: 048
     Dates: start: 20111109, end: 20111130

REACTIONS (3)
  - VISUAL IMPAIRMENT [None]
  - VISION BLURRED [None]
  - AURA [None]
